FAERS Safety Report 9333865 (Version 1)
Quarter: 2013Q2

REPORT INFORMATION
  Report Type: Spontaneous
  Country: US (occurrence: US)
  Receive Date: 20130606
  Receipt Date: 20130606
  Transmission Date: 20140414
  Serious: No
  Sender: FDA-Public Use
  Company Number: US-AMGEN-USASP2013005957

PATIENT
  Age: 82 Year
  Sex: Male

DRUGS (20)
  1. PROLIA [Suspect]
     Indication: OSTEOPOROSIS
     Dosage: UNK
     Dates: start: 20121217
  2. ALLOPURINOL [Concomitant]
     Dosage: 300 MG, QD
  3. AMLODIPINE [Concomitant]
     Dosage: 5 MG, QD
  4. ASTHALIN                           /00012201/ [Concomitant]
     Dosage: 2 SPRAYS EACH NOSTRIL, BID
  5. LANTUS [Concomitant]
     Dosage: 47 UNIT, QHS
  6. ATORVASTATIN [Concomitant]
     Dosage: 10 MG, QD
  7. JANUVIA [Concomitant]
     Dosage: 100 MG, QD
  8. NEXIUM                             /01479302/ [Concomitant]
     Dosage: 40 MG, QD
  9. NIRAVAM [Concomitant]
     Dosage: 0.25 MG, AS NECESSARY
  10. SYNTHROID [Concomitant]
     Dosage: 0.05 MG, QD
  11. PREDNISOLONE ACETATE [Concomitant]
     Dosage: 1 DROP LEFT EYE, QD
  12. AZOPT [Concomitant]
     Dosage: 1 DROP LEFT EYE, TID
  13. COMBIGAN [Concomitant]
     Dosage: 1 DROP LEFT EYE, BID
  14. TRAVATAN Z [Concomitant]
     Dosage: 1 DROP LEFT EYE HS
  15. CALCIUM WITH VITAMIN D             /00944201/ [Concomitant]
     Dosage: 2400 MG, QD
  16. GARLIC                             /01570501/ [Concomitant]
     Dosage: 1, QD
  17. VITAMIN B12                        /00056201/ [Concomitant]
     Dosage: 1, QD
  18. VITAMIN D3 [Concomitant]
  19. VITAMIN C                          /00008001/ [Concomitant]
     Dosage: 1 QD
  20. ALEVE [Concomitant]
     Dates: start: 2006

REACTIONS (4)
  - Pain in jaw [Unknown]
  - Sleep disorder [Unknown]
  - Musculoskeletal pain [Unknown]
  - Pain in extremity [Unknown]
